FAERS Safety Report 5028591-0 (Version None)
Quarter: 2006Q2

REPORT INFORMATION
  Report Type: 
  Country: None (occurrence: None)
  Receive Date: 20060615
  Receipt Date: 20060615
  Transmission Date: 20061013
  Serious: Yes (Other)
  Sender: FDA-Public Use
  Company Number: None

PATIENT
  Age: 78 Year
  Sex: Female
  Weight: 38.5557 kg

DRUGS (1)
  1. AVELOX [Suspect]
     Indication: LUNG INFILTRATION
     Dosage: 400 MG  QD   OTHER
     Route: 050

REACTIONS (1)
  - POLYARTHRITIS [None]
